FAERS Safety Report 4664046-0 (Version None)
Quarter: 2005Q2

REPORT INFORMATION
  Report Type: 
  Country: None (occurrence: None)
  Receive Date: 20050512
  Receipt Date: 20050506
  Transmission Date: 20051028
  Serious: Yes (Hospitalization)
  Sender: FDA-Public Use
  Company Number: 603535

PATIENT
  Age: 50 Year
  Sex: Female

DRUGS (2)
  1. GAMMAGARD S/D [Suspect]
  2. REBIF [Concomitant]

REACTIONS (2)
  - HEADACHE [None]
  - HYPERTENSION [None]
